FAERS Safety Report 5897735-0 (Version None)
Quarter: 2008Q3

REPORT INFORMATION
  Report Type: 
  Country: None (occurrence: None)
  Receive Date: 20080925
  Receipt Date: 20080915
  Transmission Date: 20090109
  Serious: Yes (Other)
  Sender: FDA-Public Use
  Company Number: PHHY2008CH18186

PATIENT
  Sex: Female

DRUGS (1)
  1. ACLASTA [Suspect]
     Indication: OSTEOPOROSIS
     Dosage: UNK
     Dates: start: 20080808

REACTIONS (13)
  - ARTHRALGIA [None]
  - ARTHROPATHY [None]
  - BED REST [None]
  - BONE PAIN [None]
  - DIZZINESS [None]
  - DYSSTASIA [None]
  - FATIGUE [None]
  - MOVEMENT DISORDER [None]
  - MYALGIA [None]
  - ORAL DISCOMFORT [None]
  - ORTHOSTATIC INTOLERANCE [None]
  - SYNCOPE VASOVAGAL [None]
  - VISUAL ACUITY REDUCED [None]
